FAERS Safety Report 15213584 (Version 4)
Quarter: 2020Q2

REPORT INFORMATION
  Report Type: Spontaneous
  Country: PT (occurrence: PT)
  Receive Date: 20180730
  Receipt Date: 20200625
  Transmission Date: 20200713
  Serious: Yes (Hospitalization, Other)
  Sender: FDA-Public Use
  Company Number: PT-AUROBINDO-AUR-APL-2018-038582

PATIENT
  Age: 27 Year
  Sex: Female

DRUGS (4)
  1. FLUTICASONE PROPIONATE;SALMETEROL XINAFOATE [Suspect]
     Active Substance: FLUTICASONE PROPIONATE\SALMETEROL XINAFOATE
     Indication: INFLUENZA LIKE ILLNESS
     Dosage: 1 DOSAGE FORM= (50 MCG SALMETEROL+250 MCG FLUTICASONE PROPIONATE)
     Route: 055
  2. BUDESONIDE. [Suspect]
     Active Substance: BUDESONIDE
     Indication: COUGH
     Dosage: 1 MILLIGRAM
     Route: 055
  3. ACETAMINOPHEN. [Concomitant]
     Active Substance: ACETAMINOPHEN
     Indication: COUGH
     Dosage: 1 GRAM
     Route: 042
  4. OLANZAPINE. [Suspect]
     Active Substance: OLANZAPINE
     Indication: PRODUCT USED FOR UNKNOWN INDICATION
     Dosage: 10 MILLIGRAM, ONCE A DAY
     Route: 065

REACTIONS (12)
  - Aggression [Recovered/Resolved]
  - Behaviour disorder [Recovered/Resolved]
  - Altered state of consciousness [Recovered/Resolved]
  - Weight increased [Unknown]
  - Restlessness [Unknown]
  - Weight decreased [Recovered/Resolved]
  - Somnolence [Recovered/Resolved]
  - Intentional product misuse [Unknown]
  - Delirium [Recovered/Resolved]
  - Off label use [Recovered/Resolved]
  - Overdose [Unknown]
  - Hallucinations, mixed [Unknown]
